FAERS Safety Report 13939518 (Version 4)
Quarter: 2019Q3

REPORT INFORMATION
  Report Type: Spontaneous
  Country: US (occurrence: US)
  Receive Date: 20170906
  Receipt Date: 20190903
  Transmission Date: 20191004
  Serious: No
  Sender: FDA-Public Use
  Company Number: US-PFIZER INC-2017379799

PATIENT
  Age: 54 Year
  Sex: Female

DRUGS (1)
  1. XELJANZ XR [Suspect]
     Active Substance: TOFACITINIB CITRATE
     Indication: RHEUMATOID ARTHRITIS
     Dosage: 11 MG, 1X/DAY
     Route: 048
     Dates: start: 201901

REACTIONS (6)
  - Bone erosion [Unknown]
  - Myalgia [Recovered/Resolved]
  - Condition aggravated [Unknown]
  - Therapeutic product effect incomplete [Unknown]
  - Joint noise [Unknown]
  - Bone density decreased [Unknown]

NARRATIVE: CASE EVENT DATE: 2019
